FAERS Safety Report 12602878 (Version 2)
Quarter: 2016Q3

REPORT INFORMATION
  Report Type: Report from Study
  Country: BR (occurrence: BR)
  Receive Date: 20160728
  Receipt Date: 20160729
  Transmission Date: 20161109
  Serious: Yes (Other)
  Sender: FDA-Public Use
  Company Number: PHHY2016BR102560

PATIENT
  Age: 79 Year
  Sex: Male
  Weight: 97 kg

DRUGS (2)
  1. DIOVAN [Suspect]
     Active Substance: VALSARTAN
     Indication: HYPERTENSION
     Dosage: 1 DF, QD (320 MG)
     Route: 048
     Dates: start: 2012
  2. DIOVAN [Suspect]
     Active Substance: VALSARTAN
     Dosage: 1 DF, QD (160 MG)
     Route: 048
     Dates: start: 20160222, end: 201603

REACTIONS (12)
  - Burning sensation [Unknown]
  - Dyspnoea [Not Recovered/Not Resolved]
  - Malaise [Unknown]
  - Drug ineffective [Unknown]
  - Cardiac disorder [Recovered/Resolved]
  - Lung cyst [Unknown]
  - Influenza [Unknown]
  - Hernia pain [Unknown]
  - Fatigue [Unknown]
  - Inguinal hernia [Unknown]
  - Dizziness [Unknown]
  - Nasopharyngitis [Recovering/Resolving]

NARRATIVE: CASE EVENT DATE: 201607
